FAERS Safety Report 4505802-9 (Version None)
Quarter: 2004Q4

REPORT INFORMATION
  Report Type: 
  Country: None (occurrence: None)
  Receive Date: 20041119
  Receipt Date: 20041112
  Transmission Date: 20050328
  Serious: Yes (Hospitalization)
  Sender: FDA-Public Use
  Company Number: IT-JNJFOC-20041103924

PATIENT
  Sex: Female

DRUGS (1)
  1. ORTHO EVRA [Suspect]
     Indication: CONTRACEPTION
     Route: 062
     Dates: start: 20040702, end: 20040709

REACTIONS (5)
  - CONFUSIONAL STATE [None]
  - HEADACHE [None]
  - HYPERTENSION [None]
  - NAUSEA [None]
  - TREMOR [None]
